FAERS Safety Report 10541123 (Version 1)
Quarter: 2014Q4

REPORT INFORMATION
  Report Type: Spontaneous
  Country: US (occurrence: None)
  Receive Date: 20141010
  Receipt Date: 20141010
  Transmission Date: 20150529
  Serious: No
  Sender: FDA-Public Use
  Company Number: 163-POMAL-14081479

PATIENT
  Age: 69 Year
  Sex: Male
  Weight: 92.53 kg

DRUGS (18)
  1. ALLOPURINOL (ALLOPURINOL) (UNKNOWN) [Concomitant]
  2. CARVEDIOLOL (CARVEDIOLOL) (UNKNOWN) [Concomitant]
  3. VITAMIN C (ASCORBIC ACID) (UNKNOWN) [Concomitant]
  4. VITAMIN D (ERGOCALCIFEROL) (UNKNOWN) [Concomitant]
  5. FOLIC ACID (FOLIC ACID) (UNKNOWN) [Concomitant]
  6. TRAZODONE [Concomitant]
     Active Substance: TRAZODONE HYDROCHLORIDE
  7. POMALYST [Suspect]
     Active Substance: POMALIDOMIDE
     Indication: MYELOFIBROSIS
     Dosage: 1 MG, 21 IN 21 D, PO
     Route: 048
     Dates: start: 20140515
  8. LOSARTAN (LOSARTAN) (UNKNOWN) [Concomitant]
     Active Substance: LOSARTAN
  9. HYDROXYUREA (HYDROXYCARBAMIDE) (UNKNOWN) [Concomitant]
  10. LASIX [Concomitant]
     Active Substance: FUROSEMIDE
  11. SPIRONOLACTONE (SPIRONOLACTONE) (UNKNOWN) [Concomitant]
  12. NEXIUM (ESOMEPRAZOLE) (UNKNOWN) [Concomitant]
  13. ESCITALOPRAM [Concomitant]
     Active Substance: ESCITALOPRAM OXALATE
  14. ZOLPIDEM [Concomitant]
     Active Substance: ZOLPIDEM\ZOLPIDEM TARTRATE
  15. ASPRIN [Concomitant]
     Active Substance: ASPIRIN
  16. MULTIVITAMINS (MULTIVITAMINS) (UNKNOWN) [Concomitant]
  17. TEMAZEPAM (TEMAZEPAM) (UNKNOWN) [Concomitant]
  18. POTASSIUM (POTASSIUM) (UNKNOWN) [Concomitant]

REACTIONS (1)
  - Heart rate increased [None]

NARRATIVE: CASE EVENT DATE: 20140806
